FAERS Safety Report 8508772-1 (Version None)
Quarter: 2012Q3

REPORT INFORMATION
  Report Type: 
  Country: None (occurrence: None)
  Receive Date: 20120703
  Receipt Date: 20120703
  Transmission Date: 20120928
  Serious: Yes (Disabling, Other)
  Sender: FDA-Public Use
  Company Number: 2012P1044345

PATIENT
  Age: 84 Year
  Sex: Female
  Weight: 175 kg

DRUGS (10)
  1. PREDNISONE TABLETS USP 2.5MG (NO PREF. NAME) [Suspect]
     Indication: TEMPORAL ARTERITIS
     Dosage: 2.5 KG;QD;PO
     Route: 048
     Dates: start: 20120101
  2. VENLAFAXINE HCL [Concomitant]
  3. BESYLATE [Concomitant]
  4. FIBER LAXATIVE TABLETS [Concomitant]
  5. PREDNISONE TABLETS USP 10MG (NO PREF. NAME) [Suspect]
     Indication: TEMPORAL ARTERITIS
     Dates: start: 20120101, end: 20120101
  6. AMLODIPINE [Concomitant]
  7. PREDNISONE TABLETS 1MG (NO PREF. NAME) [Suspect]
     Indication: TEMPORAL ARTERITIS
     Dosage: 1 MG;QD;PO
     Route: 048
     Dates: start: 20120101
  8. ALPRAZOLAM [Concomitant]
  9. FISH OIL [Concomitant]
  10. PROPRAIOLOL [Concomitant]

REACTIONS (11)
  - ABDOMINAL PAIN UPPER [None]
  - SUICIDAL IDEATION [None]
  - DIZZINESS [None]
  - CONDITION AGGRAVATED [None]
  - ASTHENIA [None]
  - IRRITABILITY [None]
  - GAIT DISTURBANCE [None]
  - WALKING AID USER [None]
  - DEPRESSION [None]
  - INSOMNIA [None]
  - BLINDNESS [None]
